FAERS Safety Report 25040665 (Version 1)
Quarter: 2025Q1

REPORT INFORMATION
  Report Type: Spontaneous
  Country: US (occurrence: None)
  Receive Date: 20250304
  Receipt Date: 20250304
  Transmission Date: 20250408
  Serious: Yes (Hospitalization)
  Sender: FDA-CTU
  Company Number: None

PATIENT
  Sex: Female

DRUGS (11)
  1. TERIFLUNOMIDE [Suspect]
     Active Substance: TERIFLUNOMIDE
     Indication: Multiple sclerosis
     Dosage: TAKE 1 TABLET BY MOUTH EVERY DAY?
     Route: 048
     Dates: start: 20230401
  2. AUBAGIO [Concomitant]
     Active Substance: TERIFLUNOMIDE
  3. CLARITIN TAB 10MG [Concomitant]
  4. CYCLOBENZAPRTAB 10MG [Concomitant]
  5. DIAZEPAM TAB 10MG [Concomitant]
  6. FLUCONAZOLE TAB 200MG [Concomitant]
  7. KETOROLAC SOL0.4% [Concomitant]
  8. LASIX TAB 20MG [Concomitant]
  9. LISINOPRIL POW [Concomitant]
  10. METOPROLOL POW TARTRATE [Concomitant]
  11. OMEPRAZOLE [Concomitant]
     Active Substance: OMEPRAZOLE

REACTIONS (2)
  - Hospitalisation [None]
  - Therapy interrupted [None]
